FAERS Safety Report 5718127-0 (Version None)
Quarter: 2008Q2

REPORT INFORMATION
  Report Type: 
  Country: None (occurrence: None)
  Receive Date: 20080425
  Receipt Date: 20080422
  Transmission Date: 20081010
  Serious: Yes (Hospitalization)
  Sender: FDA-Public Use
  Company Number: FR-JNJFOC-20080405299

PATIENT
  Sex: Male
  Weight: 75 kg

DRUGS (8)
  1. RISPERDAL CONSTA [Suspect]
     Indication: SCHIZOPHRENIA
     Route: 030
  2. RISPERDAL [Concomitant]
     Indication: SCHIZOPHRENIA
     Route: 048
  3. IMOVANE [Concomitant]
     Indication: INSOMNIA
     Route: 048
  4. CREON [Concomitant]
     Indication: PANCREATIC INSUFFICIENCY
     Route: 048
  5. NOVOLOG MIX 70/30 [Concomitant]
     Indication: DIABETES MELLITUS
     Route: 058
  6. INSULATARD [Concomitant]
     Indication: DIABETES MELLITUS
     Route: 058
  7. ATARAX [Concomitant]
     Indication: ANXIETY
     Route: 048
  8. TERCIAN [Concomitant]
     Indication: SEDATION
     Route: 048

REACTIONS (5)
  - ANXIETY [None]
  - DELIRIUM [None]
  - DEPRESSION [None]
  - SUICIDAL IDEATION [None]
  - TYPE 2 DIABETES MELLITUS [None]
